FAERS Safety Report 7884462-3 (Version None)
Quarter: 2011Q4

REPORT INFORMATION
  Report Type: 
  Country: None (occurrence: None)
  Receive Date: 20111102
  Receipt Date: 20111011
  Transmission Date: 20120403
  Serious: Yes (Hospitalization)
  Sender: FDA-Public Use
  Company Number: AT-ROCHE-1003201

PATIENT
  Age: 72 Year
  Sex: Male
  Weight: 70.9 kg

DRUGS (10)
  1. HYDROCHLOROTHIAZIDE [Concomitant]
  2. NORVASC [Concomitant]
  3. ASPIRIN [Concomitant]
  4. PANTOPRAZOLE [Concomitant]
  5. ATORVASTATIN CALCIUM [Concomitant]
  6. VEMURAFENIB [Suspect]
     Indication: MALIGNANT MELANOMA
     Dosage: LAST DOSE RECEIVED ON 06 OCT 2011
     Route: 048
     Dates: start: 20110907
  7. METOCLOPRAMIDE HYDROCHLORIDE [Concomitant]
     Dosage: 75 DROPS
     Dates: start: 20110920, end: 20110925
  8. KEPPRA [Concomitant]
     Dates: start: 20110101
  9. NOMEXOR [Concomitant]
  10. FORTECORTIN [Concomitant]
     Dosage: -2 MG
     Dates: start: 20110926

REACTIONS (1)
  - VERTIGO [None]
